FAERS Safety Report 10047370 (Version 1)
Quarter: 2014Q1

REPORT INFORMATION
  Report Type: Spontaneous
  Country: US (occurrence: None)
  Receive Date: 20140327
  Receipt Date: 20140327
  Transmission Date: 20141002
  Serious: Yes (Disabling)
  Sender: FDA-Public Use
  Company Number: COL_15523_2014

PATIENT
  Sex: Male

DRUGS (1)
  1. COLGATE SPARKLING WHITE MINT ZING TOOTHPASTE [Suspect]
     Indication: PRODUCT USED FOR UNKNOWN INDICATION
     Dosage: MOSTLY COVERED THE EHAD OF TOOTHBRUSH/ONCE OR TWICW DAILY
     Route: 048

REACTIONS (7)
  - Gingival bleeding [None]
  - Oral pain [None]
  - Impaired work ability [None]
  - Gingival disorder [None]
  - Pain in jaw [None]
  - Gingivitis [None]
  - Hypoaesthesia oral [None]
